FAERS Safety Report 5215178-X (Version None)
Quarter: 2007Q1

REPORT INFORMATION
  Report Type: 
  Country: None (occurrence: None)
  Receive Date: 20070122
  Receipt Date: 20070111
  Transmission Date: 20070707
  Serious: Yes (Hospitalization)
  Sender: FDA-Public Use
  Company Number: NO-PFIZER INC-2007003624

PATIENT
  Sex: Male

DRUGS (5)
  1. CHAMPIX [Suspect]
     Indication: EX-SMOKER
     Route: 048
  2. VENTOLIN [Concomitant]
     Route: 055
  3. ATROVENT [Concomitant]
     Route: 055
  4. FLUTIDE [Concomitant]
  5. OXIS [Concomitant]
     Route: 055

REACTIONS (2)
  - CHRONIC OBSTRUCTIVE PULMONARY DISEASE [None]
  - DEPRESSION [None]
